FAERS Safety Report 8643977 (Version 3)
Quarter: 2013Q2

REPORT INFORMATION
  Report Type: Spontaneous
  Country: US (occurrence: US)
  Receive Date: 20120629
  Receipt Date: 20130502
  Transmission Date: 20140414
  Serious: Yes (Other)
  Sender: FDA-Public Use
  Company Number: US-BAYER-2012-063645

PATIENT
  Age: 31 Year
  Sex: Female

DRUGS (1)
  1. MIRENA [Suspect]
     Indication: CONTRACEPTION
     Dosage: 20 ?G/D, CONT
     Route: 015
     Dates: start: 20110526, end: 20120321

REACTIONS (4)
  - Cyst [None]
  - Procedural pain [None]
  - Ovarian cyst ruptured [Recovering/Resolving]
  - Abdominal pain [Recovering/Resolving]
